FAERS Safety Report 12155936 (Version 7)
Quarter: 2017Q3

REPORT INFORMATION
  Report Type: Report from Study
  Country: BR (occurrence: BR)
  Receive Date: 20160307
  Receipt Date: 20170706
  Transmission Date: 20171127
  Serious: Yes (Other)
  Sender: FDA-Public Use
  Company Number: BR-BRISTOL-MYERS SQUIBB COMPANY-BMS-2016-014903

PATIENT
  Age: 79 Year
  Sex: Female

DRUGS (1)
  1. ABATACEPT [Suspect]
     Active Substance: ABATACEPT
     Indication: RHEUMATOID ARTHRITIS
     Dosage: 250 MG, QMO
     Route: 042

REACTIONS (5)
  - Cataract operation [Recovered/Resolved]
  - Ocular hyperaemia [Unknown]
  - Limb operation [Unknown]
  - Cataract [Recovered/Resolved]
  - Rheumatic disorder [Unknown]

NARRATIVE: CASE EVENT DATE: 201610
